FAERS Safety Report 7590341-1 (Version None)
Quarter: 2011Q3

REPORT INFORMATION
  Report Type: 
  Country: None (occurrence: None)
  Receive Date: 20110705
  Receipt Date: 20110624
  Transmission Date: 20111222
  Serious: Yes (Other)
  Sender: FDA-Public Use
  Company Number: US-PERRIGO-11US005260

PATIENT
  Sex: Male

DRUGS (1)
  1. PSEUDEOPHEDRINE HCL [Suspect]
     Indication: PRODUCT USED FOR UNKNOWN INDICATION
     Dosage: 1 TABLET, ONCE
     Route: 048
     Dates: start: 20110308, end: 20110308

REACTIONS (3)
  - AMNESIA [None]
  - THALAMIC INFARCTION [None]
  - CONFUSIONAL STATE [None]
